FAERS Safety Report 24424298 (Version 1)
Quarter: 2024Q4

REPORT INFORMATION
  Report Type: Other
  Country: US (occurrence: US)
  Receive Date: 20241010
  Receipt Date: 20241010
  Transmission Date: 20250115
  Serious: No
  Sender: LAURUS LABS LIMITED
  Company Number: US-LAURUS LABS LIMITED-2024LAU000031

PATIENT

DRUGS (1)
  1. METFORMIN [Suspect]
     Active Substance: METFORMIN HYDROCHLORIDE
     Indication: Product used for unknown indication
     Dosage: 1000 MILLIGRAM
     Route: 065

REACTIONS (4)
  - Abdominal pain [Unknown]
  - Lactic acidosis [Unknown]
  - Malaise [Unknown]
  - Product substitution issue [Unknown]
